FAERS Safety Report 16134018 (Version 1)
Quarter: 2019Q1

REPORT INFORMATION
  Report Type: Spontaneous
  Country: US (occurrence: US)
  Receive Date: 20190329
  Receipt Date: 20190329
  Transmission Date: 20190418
  Serious: No
  Sender: FDA-Public Use
  Company Number: US-MYLANLABS-2019M1021797

PATIENT

DRUGS (1)
  1. ESTRADIOL TRANSDERMAL SYSTEM [Suspect]
     Active Substance: ESTRADIOL
     Indication: PRODUCT USED FOR UNKNOWN INDICATION
     Dosage: UNK
     Route: 062

REACTIONS (6)
  - Drug effect decreased [Unknown]
  - Application site pruritus [Unknown]
  - Vaginal haemorrhage [Unknown]
  - Product adhesion issue [Unknown]
  - Application site rash [Unknown]
  - Wrong technique in product usage process [Unknown]
